FAERS Safety Report 4948967-7 (Version None)
Quarter: 2006Q1

REPORT INFORMATION
  Report Type: 
  Country: None (occurrence: None)
  Receive Date: 20060315
  Receipt Date: 20060221
  Transmission Date: 20060701
  Serious: Yes (Hospitalization, Other)
  Sender: FDA-Public Use
  Company Number: USA0509107533

PATIENT
  Age: 58 Year
  Sex: Female

DRUGS (3)
  1. FORTEO [Suspect]
     Dosage: 20 UG/DAY, DAILY (1/D)
     Dates: start: 20031201, end: 20050620
  2. CALCIUM ^BRISTOL-MYERS SQUIBB^ (CALCIUM CARBONATE) [Concomitant]
  3. FORTEO PEN,250MCG/ML(3ML) (FORTEO PEN 250MCG/ML (3ML)) [Concomitant]

REACTIONS (23)
  - ASTHENIA [None]
  - B-CELL LYMPHOMA [None]
  - BLOOD ALBUMIN DECREASED [None]
  - BLOOD ALKALINE PHOSPHATASE INCREASED [None]
  - BLOOD CALCIUM INCREASED [None]
  - BLOOD CHOLESTEROL INCREASED [None]
  - BLOOD CREATININE INCREASED [None]
  - BLOOD TRIGLYCERIDES INCREASED [None]
  - BLOOD UREA INCREASED [None]
  - BLOOD URIC ACID INCREASED [None]
  - COUGH [None]
  - DEHYDRATION [None]
  - DIZZINESS [None]
  - DYSPHAGIA [None]
  - DYSPHONIA [None]
  - IMMUNOGLOBULINS INCREASED [None]
  - LOW DENSITY LIPOPROTEIN INCREASED [None]
  - LYMPHOCYTE COUNT DECREASED [None]
  - NEUTROPHIL COUNT INCREASED [None]
  - PYREXIA [None]
  - SJOGREN'S SYNDROME [None]
  - SOMNOLENCE [None]
  - STOMACH DISCOMFORT [None]
